FAERS Safety Report 10658216 (Version 1)
Quarter: 2014Q4

REPORT INFORMATION
  Report Type: Spontaneous
  Country: US (occurrence: None)
  Receive Date: 20141205
  Receipt Date: 20141205
  Transmission Date: 20150529
  Serious: Yes (Other)
  Sender: FDA-Public Use
  Company Number: 163-POMAL-14092723

PATIENT
  Age: 40 Year
  Sex: Male

DRUGS (1)
  1. POMALYST [Suspect]
     Active Substance: POMALIDOMIDE
     Indication: ANAEMIA
     Dosage: 21 IN 28 D
     Route: 048
     Dates: start: 201403, end: 20140905

REACTIONS (2)
  - Influenza [None]
  - Treatment noncompliance [None]

NARRATIVE: CASE EVENT DATE: 20140905
